FAERS Safety Report 24809731 (Version 1)
Quarter: 2025Q1

REPORT INFORMATION
  Report Type: Spontaneous
  Country: CN (occurrence: CN)
  Receive Date: 20250106
  Receipt Date: 20250106
  Transmission Date: 20250409
  Serious: Yes (Other)
  Sender: B BRAUN
  Company Number: CN-B.Braun Medical Inc.-2168490

PATIENT
  Age: 55 Year
  Sex: Female

DRUGS (1)
  1. NUTRILIPID I.V. FAT EMULSION [Suspect]
     Active Substance: SOYBEAN OIL
     Indication: Malnutrition

REACTIONS (3)
  - Abdominal distension [Recovered/Resolved]
  - Temperature intolerance [Recovered/Resolved]
  - Feeling cold [Recovered/Resolved]
